FAERS Safety Report 6829545-1 (Version None)
Quarter: 2010Q3

REPORT INFORMATION
  Report Type: 
  Country: None (occurrence: None)
  Receive Date: 20100709
  Receipt Date: 20070409
  Transmission Date: 20110219
  Serious: No
  Sender: FDA-Public Use
  Company Number: US-PFIZER INC-2007017427

PATIENT
  Sex: Female
  Weight: 73.48 kg

DRUGS (4)
  1. CHANTIX [Suspect]
     Indication: SMOKING CESSATION THERAPY
     Dates: start: 20070225
  2. CELEBREX [Concomitant]
  3. IBANDRONATE SODIUM [Concomitant]
  4. DIOVAN HCT [Concomitant]
     Indication: HYPERTENSION

REACTIONS (2)
  - FLATULENCE [None]
  - NAUSEA [None]
